FAERS Safety Report 9955310 (Version 3)
Quarter: 2014Q2

REPORT INFORMATION
  Report Type: Report from Study
  Country: US (occurrence: US)
  Receive Date: 20140304
  Receipt Date: 20140515
  Transmission Date: 20141212
  Serious: Yes (Other)
  Sender: FDA-Public Use
  Company Number: US-SANOFI-AVENTIS-2013SA094744

PATIENT
  Age: 52 Year
  Sex: Male

DRUGS (8)
  1. AUBAGIO [Suspect]
     Indication: MULTIPLE SCLEROSIS
     Route: 048
     Dates: start: 20130523, end: 20140411
  2. AUBAGIO [Suspect]
     Indication: MULTIPLE SCLEROSIS
     Route: 048
     Dates: start: 20130523, end: 20140411
  3. BETASERON [Concomitant]
     Route: 065
     Dates: start: 2004, end: 2009
  4. COPAXONE [Concomitant]
  5. REBIF [Concomitant]
  6. MITOXANTRONE [Concomitant]
  7. GILENYA [Concomitant]
  8. BACLOFEN [Concomitant]

REACTIONS (9)
  - Foot operation [Unknown]
  - Chromaturia [Not Recovered/Not Resolved]
  - Malaise [Unknown]
  - Alopecia [Not Recovered/Not Resolved]
  - Paraesthesia [Not Recovered/Not Resolved]
  - Condition aggravated [Not Recovered/Not Resolved]
  - Pain [Not Recovered/Not Resolved]
  - Diarrhoea [Unknown]
  - Drug dose omission [Unknown]
